FAERS Safety Report 10364247 (Version 12)
Quarter: 2015Q4

REPORT INFORMATION
  Report Type: Report from Study
  Country: US (occurrence: US)
  Receive Date: 20140806
  Receipt Date: 20151201
  Transmission Date: 20160304
  Serious: Yes (Hospitalization, Other)
  Sender: FDA-Public Use
  Company Number: US-BIOGENIDEC-2014BI075169

PATIENT
  Age: 79 Year
  Sex: Female

DRUGS (2)
  1. AVONEX [Suspect]
     Active Substance: INTERFERON BETA-1A
     Indication: MULTIPLE SCLEROSIS
     Route: 030
  2. AVONEX [Suspect]
     Active Substance: INTERFERON BETA-1A
     Indication: MULTIPLE SCLEROSIS
     Route: 030
     Dates: start: 20000801

REACTIONS (17)
  - Ulcer haemorrhage [Recovered/Resolved]
  - Mobility decreased [Not Recovered/Not Resolved]
  - Squamous cell carcinoma [Recovered/Resolved]
  - Nasal disorder [Not Recovered/Not Resolved]
  - Gait disturbance [Not Recovered/Not Resolved]
  - Prescribed underdose [Recovered/Resolved]
  - Nasal cavity cancer [Recovered/Resolved]
  - Sebaceous carcinoma [Recovered/Resolved]
  - Knee arthroplasty [Recovered/Resolved]
  - Neoplasm malignant [Recovered/Resolved with Sequelae]
  - Skin cancer [Recovered/Resolved]
  - Diarrhoea [Recovered/Resolved]
  - Thyroid cancer metastatic [Recovered/Resolved]
  - Syncope [Recovered/Resolved]
  - Basal cell carcinoma [Unknown]
  - Injection site pain [Recovered/Resolved]
  - Influenza like illness [Recovered/Resolved with Sequelae]

NARRATIVE: CASE EVENT DATE: 2005
